FAERS Safety Report 8490927-6 (Version None)
Quarter: 2012Q2

REPORT INFORMATION
  Report Type: 
  Country: None (occurrence: None)
  Receive Date: 20120629
  Receipt Date: 20120629
  Transmission Date: 20120825
  Serious: Yes (Other)
  Sender: FDA-Public Use
  Company Number: None

PATIENT
  Sex: Female

DRUGS (1)
  1. ENBREL [Suspect]
     Indication: PSORIASIS
     Dosage: 50MG B/W SUBQ
     Route: 058
     Dates: start: 20120308, end: 20120604

REACTIONS (2)
  - ACNE [None]
  - SKIN DISCOLOURATION [None]
